FAERS Safety Report 5588499-9 (Version None)
Quarter: 2008Q1

REPORT INFORMATION
  Report Type: 
  Country: None (occurrence: None)
  Receive Date: 20080111
  Receipt Date: 20080103
  Transmission Date: 20080703
  Serious: Yes (Hospitalization)
  Sender: FDA-Public Use
  Company Number: CH-ASTRAZENECA-2008PK00026

PATIENT
  Age: 35 Year
  Sex: Male

DRUGS (15)
  1. SEROQUEL [Suspect]
     Route: 048
     Dates: start: 20070726, end: 20070729
  2. SEROQUEL [Suspect]
     Route: 048
     Dates: start: 20070730, end: 20070730
  3. SEROQUEL [Suspect]
     Route: 048
     Dates: start: 20070731, end: 20070802
  4. SEROQUEL [Suspect]
     Route: 048
     Dates: start: 20070803, end: 20070806
  5. SEROQUEL [Suspect]
     Route: 048
     Dates: start: 20070807
  6. FLUOXETINE [Interacting]
     Route: 048
     Dates: start: 20070726, end: 20070806
  7. FLUOXETINE [Interacting]
     Route: 048
     Dates: start: 20070807, end: 20070809
  8. FLUOXETINE [Interacting]
     Route: 048
     Dates: start: 20070810, end: 20070813
  9. EFFEXOR [Interacting]
     Route: 048
     Dates: start: 20070807, end: 20070813
  10. EFFEXOR [Interacting]
     Route: 048
     Dates: start: 20070814, end: 20070825
  11. EFFEXOR [Interacting]
     Route: 048
     Dates: start: 20070826
  12. HALDOL [Interacting]
     Route: 048
     Dates: start: 20070808, end: 20070809
  13. HALDOL [Interacting]
     Route: 048
     Dates: start: 20070810, end: 20070813
  14. HALDOL [Interacting]
     Route: 048
     Dates: start: 20070813
  15. VALIUM [Suspect]
     Route: 048
     Dates: start: 20070731

REACTIONS (2)
  - CONSTIPATION [None]
  - DRUG INTERACTION [None]
